FAERS Safety Report 9792935 (Version 1)
Quarter: 2014Q1

REPORT INFORMATION
  Report Type: Spontaneous
  Country: US (occurrence: US)
  Receive Date: 20140102
  Receipt Date: 20140102
  Transmission Date: 20141002
  Serious: No
  Sender: FDA-Public Use
  Company Number: US-SA-2013SA131104

PATIENT
  Age: 68 Year
  Sex: Female

DRUGS (5)
  1. AUBAGIO [Suspect]
     Indication: MULTIPLE SCLEROSIS
     Route: 065
     Dates: start: 20131007
  2. CARVEDILOL [Concomitant]
     Route: 048
     Dates: start: 20120214
  3. LISINOPRIL [Concomitant]
     Route: 048
     Dates: start: 20120214
  4. LEVOTHYROXINE [Concomitant]
     Route: 048
     Dates: start: 20111012
  5. MELOXICAM [Concomitant]
     Route: 048
     Dates: start: 20130618

REACTIONS (1)
  - Alopecia [Unknown]
